FAERS Safety Report 14135578 (Version 2)
Quarter: 2018Q1

REPORT INFORMATION
  Report Type: Report from Study
  Country: US (occurrence: US)
  Receive Date: 20171026
  Receipt Date: 20180123
  Transmission Date: 20180508
  Serious: No
  Sender: FDA-Public Use
  Company Number: US-AMGEN-USASL2017134582

PATIENT
  Age: 64 Year
  Sex: Female

DRUGS (1)
  1. REPATHA [Suspect]
     Active Substance: EVOLOCUMAB
     Indication: PRODUCT USED FOR UNKNOWN INDICATION
     Dosage: 140 MG, Q2WK
     Route: 065
     Dates: start: 20170830

REACTIONS (4)
  - Oropharyngeal pain [Unknown]
  - Rash papular [Recovered/Resolved]
  - Nasopharyngitis [Unknown]
  - Skin discolouration [Unknown]

NARRATIVE: CASE EVENT DATE: 2017
